FAERS Safety Report 12692064 (Version 1)
Quarter: 2016Q3

REPORT INFORMATION
  Report Type: Spontaneous
  Country: FR (occurrence: FR)
  Receive Date: 20160827
  Receipt Date: 20160827
  Transmission Date: 20161109
  Serious: Yes (Other)
  Sender: FDA-Public Use
  Company Number: FR-AMGEN-FRASP2016110614

PATIENT
  Age: 82 Year
  Sex: Female

DRUGS (1)
  1. PROLIA [Suspect]
     Active Substance: DENOSUMAB
     Indication: OSTEOPOROSIS
     Dosage: UNK UNK, UNK
     Route: 065

REACTIONS (8)
  - Body height decreased [Unknown]
  - Fatigue [Unknown]
  - Depression [Unknown]
  - Dental operation [Unknown]
  - Sensory loss [Unknown]
  - Blindness [Unknown]
  - Osteoarthritis [Unknown]
  - Bone pain [Unknown]
